FAERS Safety Report 4456604-3 (Version None)
Quarter: 2004Q3

REPORT INFORMATION
  Report Type: 
  Country: None (occurrence: None)
  Receive Date: 20040917
  Receipt Date: 20040907
  Transmission Date: 20050211
  Serious: Yes (Death, Other)
  Sender: FDA-Public Use
  Company Number: 2004-09-0083

PATIENT
  Age: 47 Year
  Sex: Male
  Weight: 97.5234 kg

DRUGS (8)
  1. PEG-INTRON [Suspect]
     Indication: HEPATITIS C
     Dosage: 150 MCG QW SUBCUTANEOUS
     Route: 058
     Dates: start: 20030328, end: 20030515
  2. REBETOL [Suspect]
     Indication: HEPATITIS C
     Dosage: 1200 MG QD ORAL
     Route: 048
     Dates: start: 20030328, end: 20030515
  3. BENICAR [Concomitant]
  4. NADOLOL [Concomitant]
  5. TOPROL-XL [Concomitant]
  6. LEXAPRO [Concomitant]
  7. PROTONIX [Concomitant]
  8. COMTAN [Concomitant]

REACTIONS (8)
  - DEPRESSED LEVEL OF CONSCIOUSNESS [None]
  - HEPATIC ENCEPHALOPATHY [None]
  - HYPERGLYCAEMIA [None]
  - INTESTINAL ISCHAEMIA [None]
  - PARKINSON'S DISEASE [None]
  - PNEUMONIA ASPIRATION [None]
  - THROMBOCYTOPENIA [None]
  - URINARY RETENTION [None]
